FAERS Safety Report 20171324 (Version 1)
Quarter: 2021Q4

REPORT INFORMATION
  Report Type: Spontaneous
  Country: US (occurrence: US)
  Receive Date: 20211210
  Receipt Date: 20211210
  Transmission Date: 20220303
  Serious: No
  Sender: FDA-Public Use
  Company Number: US-AMNEAL PHARMACEUTICALS-2021-AMRX-04295

PATIENT
  Age: 82 Year
  Sex: Female

DRUGS (2)
  1. COLESTIPOL HYDROCHLORIDE [Suspect]
     Active Substance: COLESTIPOL HYDROCHLORIDE
     Indication: Blood cholesterol abnormal
     Dosage: 3 TABLETS, DAILY (1 TABLET IN MORNING AND 2 TABLET IN EVENING)
     Route: 048
     Dates: start: 202110
  2. COLESTIPOL HYDROCHLORIDE [Suspect]
     Active Substance: COLESTIPOL HYDROCHLORIDE
     Dosage: 3 TABLETS, DAILY (1 TABLET IN MORNING AND 2 TABLET IN EVENING)
     Route: 048
     Dates: start: 202110

REACTIONS (4)
  - Abdominal distension [Not Recovered/Not Resolved]
  - Flatulence [Not Recovered/Not Resolved]
  - Product substitution issue [Unknown]
  - Product physical issue [Unknown]

NARRATIVE: CASE EVENT DATE: 20211001
